FAERS Safety Report 11158485 (Version 1)
Quarter: 2015Q2

REPORT INFORMATION
  Report Type: Spontaneous
  Country: US (occurrence: None)
  Receive Date: 20150514
  Receipt Date: 20150514
  Transmission Date: 20150821
  Serious: Yes (Death)
  Sender: FDA-Public Use
  Company Number: 2015010051

PATIENT
  Age: 60 Year
  Sex: Female

DRUGS (6)
  1. HYDROCHLOROTHIAZIDE (HYDROCHLOROTHIAZIDE) [Suspect]
     Active Substance: HYDROCHLOROTHIAZIDE
  2. ATENOLOL (ATENOLOL) [Suspect]
     Active Substance: ATENOLOL
  3. LORAZEPAM (LORAZEPAM) [Suspect]
     Active Substance: LORAZEPAM
  4. ZOLPIDEM (ZOLPIDEM) [Suspect]
     Active Substance: ZOLPIDEM TARTRATE
  5. DILTIAZEM (DILTIAZEM) [Suspect]
     Active Substance: DILTIAZEM
  6. ALPRAZOLAM (ALPRAZOLAM) [Suspect]
     Active Substance: ALPRAZOLAM

REACTIONS (1)
  - Completed suicide [None]

NARRATIVE: CASE EVENT DATE: 2013
